FAERS Safety Report 6473202-0 (Version None)
Quarter: 2009Q4

REPORT INFORMATION
  Report Type: 
  Country: None (occurrence: None)
  Receive Date: 20091204
  Receipt Date: 20090527
  Transmission Date: 20100525
  Serious: Yes (Life-Threatening, Hospitalization)
  Sender: FDA-Public Use
  Company Number: JP-ELI_LILLY_AND_COMPANY-JP200806005111

PATIENT
  Sex: Female
  Weight: 36.4 kg

DRUGS (10)
  1. EVISTA [Suspect]
     Indication: OSTEOPOROSIS POSTMENOPAUSAL
     Dosage: 60 MG, DAILY (1/D)
     Route: 048
     Dates: end: 20080426
  2. RHEUMATREX [Concomitant]
     Indication: RHEUMATOID ARTHRITIS
     Route: 048
     Dates: start: 20010901, end: 20080427
  3. ELCITONIN [Concomitant]
     Indication: OSTEOPOROSIS POSTMENOPAUSAL
     Route: 030
     Dates: start: 20080101, end: 20080403
  4. PREDONINE [Concomitant]
     Indication: RHEUMATOID ARTHRITIS
     Route: 048
     Dates: start: 20080408
  5. ASPARA-CA [Concomitant]
     Dosage: 2 D/F, DAILY (1/D)
     Route: 048
  6. RIMATIL [Concomitant]
     Indication: RHEUMATOID ARTHRITIS
     Dosage: 2 D/F, DAILY (1/D)
     Route: 048
     Dates: end: 20080427
  7. NORVASC [Concomitant]
     Indication: HYPERTENSION
     Dosage: 5 MG, 2/D
     Route: 048
  8. NU-LOTAN [Concomitant]
     Indication: HYPERTENSION
     Dosage: 5 MG, DAILY (1/D)
     Route: 048
  9. DIGOSIN [Concomitant]
     Indication: CARDIAC FAILURE
     Dosage: 0.5 MG, DAILY (1/D)
     Route: 048
  10. LASIX [Concomitant]
     Indication: CARDIAC FAILURE
     Dosage: 20 MG, DAILY (1/D)
     Route: 048

REACTIONS (1)
  - PULMONARY EMBOLISM [None]
